FAERS Safety Report 6863855-7 (Version None)
Quarter: 2010Q3

REPORT INFORMATION
  Report Type: 
  Country: None (occurrence: None)
  Receive Date: 20100721
  Receipt Date: 20080312
  Transmission Date: 20110219
  Serious: No
  Sender: FDA-Public Use
  Company Number: US-PFIZER INC-2008024088

PATIENT
  Sex: Male
  Weight: 111.1 kg

DRUGS (3)
  1. CHANTIX [Suspect]
     Indication: SMOKING CESSATION THERAPY
     Dates: start: 20080303
  2. ALL OTHER THERAPEUTIC PRODUCTS [Concomitant]
     Indication: HYPERCALCIURIA
  3. FELODIPINE [Concomitant]
     Indication: HYPERTENSION

REACTIONS (5)
  - DISORIENTATION [None]
  - DIZZINESS [None]
  - FEELING ABNORMAL [None]
  - NAUSEA [None]
  - SWOLLEN TONGUE [None]
